FAERS Safety Report 19217118 (Version 1)
Quarter: 2021Q2

REPORT INFORMATION
  Report Type: Spontaneous
  Country: PL (occurrence: PL)
  Receive Date: 20210505
  Receipt Date: 20210505
  Transmission Date: 20210717
  Serious: Yes (Other)
  Sender: FDA-Public Use
  Company Number: PL-PFIZER INC-2021434694

PATIENT
  Age: 49 Year
  Weight: 86 kg

DRUGS (3)
  1. SUTENT [Suspect]
     Active Substance: SUNITINIB MALATE
     Dosage: COURSE (DAYS) 19?32: 37.5 MG
  2. SUTENT [Suspect]
     Active Substance: SUNITINIB MALATE
     Dosage: COURSE (DAY) 33: 25 MG
  3. SUTENT [Suspect]
     Active Substance: SUNITINIB MALATE
     Dosage: COURSE (DAYS) 1?18: 50 MG

REACTIONS (44)
  - Myalgia [Unknown]
  - Tremor [Unknown]
  - Dehydration [Unknown]
  - Left ventricular dysfunction [Unknown]
  - Asthenia [Unknown]
  - Telangiectasia [Unknown]
  - Hypertriglyceridaemia [Unknown]
  - Alanine aminotransferase increased [Unknown]
  - Tachycardia [Unknown]
  - Hypoglycaemia [Unknown]
  - Neutrophilia [Unknown]
  - Synovial cyst [Unknown]
  - Leukocytosis [Unknown]
  - Pain in extremity [Unknown]
  - Blood pressure abnormal [Unknown]
  - Back pain [Unknown]
  - Decreased appetite [Unknown]
  - Thyroid function test abnormal [Unknown]
  - Insomnia [Unknown]
  - Degenerative bone disease [Unknown]
  - Thrombosis [Unknown]
  - Tooth loss [Unknown]
  - Dry skin [Unknown]
  - Skin lesion [Unknown]
  - Gynaecomastia [Unknown]
  - Diarrhoea [Unknown]
  - Cough [Unknown]
  - Thrombocytopenia [Unknown]
  - Alkalosis [Unknown]
  - Chronic kidney disease [Unknown]
  - Fatigue [Unknown]
  - Interstitial lung disease [Unknown]
  - Leukopenia [Unknown]
  - Venous thrombosis [Unknown]
  - Muscle spasms [Unknown]
  - Vomiting [Unknown]
  - Dizziness [Unknown]
  - Hair colour changes [Unknown]
  - Oedema peripheral [Unknown]
  - Taste disorder [Unknown]
  - Aspartate aminotransferase increased [Unknown]
  - Lymphopenia [Unknown]
  - Hyperglycaemia [Unknown]
  - Oral disorder [Unknown]
